FAERS Safety Report 10025384 (Version 1)
Quarter: 2014Q1

REPORT INFORMATION
  Report Type: Spontaneous
  Country: US (occurrence: US)
  Receive Date: 20140320
  Receipt Date: 20140320
  Transmission Date: 20141002
  Serious: Yes (Hospitalization)
  Sender: FDA-Public Use
  Company Number: US-PFIZER INC-2014078612

PATIENT
  Age: 48 Year
  Sex: Male
  Weight: 113.38 kg

DRUGS (3)
  1. TIKOSYN [Suspect]
     Indication: ATRIAL FIBRILLATION
     Dosage: UNK, 2X/DAY
     Route: 048
  2. METOPROLOL [Concomitant]
     Indication: BLOOD PRESSURE ABNORMAL
     Dosage: UNK
  3. CARDIZEM [Concomitant]
     Indication: HEART RATE ABNORMAL
     Dosage: UNK

REACTIONS (1)
  - Atrial fibrillation [Unknown]
